FAERS Safety Report 13081216 (Version 2)
Quarter: 2017Q2

REPORT INFORMATION
  Report Type: Spontaneous
  Country: DK (occurrence: DK)
  Receive Date: 20170103
  Receipt Date: 20170611
  Transmission Date: 20170830
  Serious: Yes (Life-Threatening, Hospitalization, Other)
  Sender: FDA-Public Use
  Company Number: DK-MYLANLABS-2016M1058163

PATIENT

DRUGS (3)
  1. ATORVASTATIN ?MYLAN? [Suspect]
     Active Substance: ATORVASTATIN
     Indication: HYPERCHOLESTEROLAEMIA
     Dosage: STYRKE: 80 MG
     Route: 048
     Dates: start: 20120101, end: 20161116
  2. RAMIPRIL. [Concomitant]
     Active Substance: RAMIPRIL
     Indication: HYPERTENSION
     Dosage: UNK
     Dates: start: 20120714, end: 20161116
  3. QUETIAPIN [Suspect]
     Active Substance: QUETIAPINE
     Indication: ANXIETY
     Dosage: STYRKE: 25 MG
     Route: 048
     Dates: start: 20150924, end: 20161116

REACTIONS (12)
  - Acute kidney injury [Recovered/Resolved]
  - Muscle enzyme increased [Recovered/Resolved]
  - General physical health deterioration [Unknown]
  - Musculoskeletal pain [Unknown]
  - Ascites [Recovered/Resolved]
  - Hepatic enzyme increased [Recovered/Resolved]
  - Pain in extremity [Unknown]
  - Liver injury [Unknown]
  - Dyspnoea [Unknown]
  - Muscular weakness [Recovered/Resolved]
  - Haemodialysis [Recovered/Resolved]
  - Rhabdomyolysis [Unknown]

NARRATIVE: CASE EVENT DATE: 201611
